FAERS Safety Report 13998617 (Version 1)
Quarter: 2017Q3

REPORT INFORMATION
  Report Type: Spontaneous
  Country: US (occurrence: US)
  Receive Date: 20170922
  Receipt Date: 20170922
  Transmission Date: 20171128
  Serious: Yes (Hospitalization)
  Sender: FDA-Public Use
  Company Number: US-SAGE PRODUCTS, LLC-2027309

PATIENT
  Age: 58 Year
  Sex: Female
  Weight: 104.55 kg

DRUGS (1)
  1. CHLORHEXIDINE GLUCONATE. [Suspect]
     Active Substance: CHLORHEXIDINE GLUCONATE
     Indication: PREOPERATIVE CARE
     Route: 061
     Dates: start: 20170731, end: 20170731

REACTIONS (6)
  - Feeling hot [Recovered/Resolved]
  - Hyporesponsive to stimuli [Recovered/Resolved]
  - Nausea [Recovered/Resolved]
  - Abdominal pain [Recovered/Resolved]
  - Blood pressure decreased [Recovered/Resolved]
  - Hypersensitivity [Recovered/Resolved]

NARRATIVE: CASE EVENT DATE: 20170731
